FAERS Safety Report 24653278 (Version 2)
Quarter: 2025Q1

REPORT INFORMATION
  Report Type: Report from Study
  Country: US (occurrence: US)
  Receive Date: 20241122
  Receipt Date: 20250125
  Transmission Date: 20250409
  Serious: Yes (Hospitalization, Other)
  Sender: ABBVIE
  Company Number: US-ABBVIE-5984073

PATIENT
  Age: 75 Year
  Sex: Female
  Weight: 66 kg

DRUGS (43)
  1. HUMIRA [Suspect]
     Active Substance: ADALIMUMAB
     Indication: Psoriasis
     Dosage: FORM STRENGTH 40MG
     Route: 058
     Dates: start: 20220923
  2. SIMVASTATIN [Concomitant]
     Active Substance: SIMVASTATIN
     Indication: Blood cholesterol
     Route: 065
  3. ROBAXIN [Concomitant]
     Active Substance: METHOCARBAMOL
     Indication: Muscle spasms
  4. OMEPRAZOLE [Concomitant]
     Active Substance: OMEPRAZOLE
     Indication: Gastrooesophageal reflux disease
     Route: 065
  5. ALBUTEROL [Concomitant]
     Active Substance: ALBUTEROL
     Indication: Bronchitis
  6. AZELASTINE [Concomitant]
     Active Substance: AZELASTINE
     Indication: Nasal disorder
  7. LOSARTAN [Concomitant]
     Active Substance: LOSARTAN
     Indication: Blood pressure management
     Route: 065
  8. METRONIDAZOLE [Concomitant]
     Active Substance: METRONIDAZOLE
     Indication: Rosacea
     Route: 061
  9. TRELEGY ELLIPTA [Concomitant]
     Active Substance: FLUTICASONE FUROATE\UMECLIDINIUM BROMIDE\VILANTEROL TRIFENATATE
     Indication: Chronic obstructive pulmonary disease
     Dosage: 100-62.5MCG INH 30P X1 INHALATION DAILY
  10. GABAPENTIN [Concomitant]
     Active Substance: GABAPENTIN
     Indication: Back pain
  11. TRAMADOL [Concomitant]
     Active Substance: TRAMADOL
     Indication: Breakthrough pain
     Route: 065
  12. PROLIA [Concomitant]
     Active Substance: DENOSUMAB
     Indication: Osteoarthritis
  13. Alprazolams (Alprazolam) [Concomitant]
     Indication: Sleep disorder
     Route: 065
  14. SERTRALINE [Concomitant]
     Active Substance: SERTRALINE HYDROCHLORIDE
     Indication: Depression
     Dosage: STRENGTH: 50 MG
     Route: 065
  15. AMLODIPINE [Concomitant]
     Active Substance: AMLODIPINE BESYLATE
     Indication: Blood pressure management
     Route: 065
  16. CALCIUM\MAGNESIUM [Concomitant]
     Active Substance: CALCIUM\MAGNESIUM
     Indication: Product used for unknown indication
     Dosage: STRENGTH: 600 MG
     Route: 065
  17. CRANBERRY [Concomitant]
     Active Substance: CRANBERRY
     Indication: Product used for unknown indication
     Dosage: STRENGTH: 600 MG
     Route: 065
  18. Omega-3 Krill [Concomitant]
     Indication: Product used for unknown indication
     Dosage: 350 MG
     Route: 065
  19. VITAMIN D3 [Concomitant]
     Active Substance: CHOLECALCIFEROL
     Indication: Product used for unknown indication
     Dosage: STRENGTH: 3000 MG
     Route: 065
  20. BIOTIN [Concomitant]
     Active Substance: BIOTIN
     Indication: Product used for unknown indication
     Dosage: STRENGTH: 1000 MCG
     Route: 065
  21. DIETARY SUPPLEMENT [Concomitant]
     Active Substance: DIETARY SUPPLEMENT
     Indication: Product used for unknown indication
     Route: 065
  22. LUTEIN [Concomitant]
     Active Substance: LUTEIN
     Indication: Product used for unknown indication
     Dosage: STRENGTH: 40 MG SOFT GELS
     Route: 065
  23. ALIGN [Concomitant]
     Active Substance: BIFIDOBACTERIUM LONGUM SUBSP. INFANTIS
     Indication: Product used for unknown indication
     Route: 065
  24. MUCINEX [Concomitant]
     Active Substance: GUAIFENESIN
     Indication: Product used for unknown indication
     Dosage: STRENGTH: 1200 MG TABLETS X1 TWICE DAILY
     Route: 065
  25. IRON [Concomitant]
     Active Substance: IRON
     Indication: Product used for unknown indication
     Dosage: STRENGTH: 45 MG, SLOW RELEASE
     Route: 065
  26. COMBIVENT RESPIMAT [Concomitant]
     Active Substance: ALBUTEROL SULFATE\IPRATROPIUM BROMIDE
     Indication: Bronchitis
  27. CALCIPOTRIENE [Concomitant]
     Active Substance: CALCIPOTRIENE
     Indication: Product used for unknown indication
     Dosage: 0.005% CREAM 60GM, APPLY 1-2X EVERY OTHER DAY AS NEEDED
     Route: 065
  28. TRIAMCINOLONE [Concomitant]
     Active Substance: TRIAMCINOLONE
     Indication: Rash
     Dosage: 0.1%, 454GM APPLY X2 DAILY AS NEEDED
  29. PROAIR HFA [Concomitant]
     Active Substance: ALBUTEROL SULFATE
     Indication: Product used for unknown indication
  30. Echinacea complex [Concomitant]
     Indication: Product used for unknown indication
     Dosage: STRENGTH: 450 MG
     Route: 065
  31. HERBALS\TURMERIC [Concomitant]
     Active Substance: HERBALS\TURMERIC
     Indication: Product used for unknown indication
     Dosage: STRENGTH: 400 MG
  32. GINKGO [Concomitant]
     Active Substance: GINKGO
     Indication: Product used for unknown indication
     Dosage: STRENGTH: 120 MG
     Route: 065
  33. BLACK COHOSH [Concomitant]
     Active Substance: BLACK COHOSH
     Indication: Menopause
     Dosage: STRENGTH: 540 MG
     Route: 065
  34. VITAMIN C [Concomitant]
     Active Substance: ASCORBIC ACID
     Indication: Product used for unknown indication
     Dosage: STRENGTH: 500 MG
     Route: 065
  35. MINERALS\VITAMINS [Concomitant]
     Active Substance: MINERALS\VITAMINS
     Indication: Product used for unknown indication
     Route: 065
  36. GAS-X [Concomitant]
     Active Substance: DIMETHICONE
     Indication: Product used for unknown indication
     Dosage: STRENGTH: 125 MG SOFT GELS X4 DAILY
     Route: 065
  37. PHAZYME [Concomitant]
     Active Substance: DIMETHICONE 410
     Indication: Product used for unknown indication
     Dosage: STRENGTH: 125 MG SOFT GELS
     Route: 065
  38. MIRALAX [Concomitant]
     Active Substance: POLYETHYLENE GLYCOL 3350
     Indication: Product used for unknown indication
     Dosage: 17GM/SCOOP
     Route: 048
  39. METAMUCIL [Concomitant]
     Active Substance: PLANTAGO SEED
     Indication: Product used for unknown indication
     Dosage: HEAPING TEASPOON DAILY
     Route: 065
  40. POTASSIUM GLUCONATE [Concomitant]
     Active Substance: POTASSIUM GLUCONATE
     Indication: Product used for unknown indication
  41. VITAMIN B COMPLEX [Concomitant]
     Active Substance: CYANOCOBALAMIN\DEXPANTHENOL\NIACINAMIDE\PYRIDOXINE HYDROCHLORIDE\RIBOFLAVIN 5^-PHOSPHATE SODIUM\THIA
     Indication: Product used for unknown indication
     Dosage: STRENGTH: 50 MG
     Route: 065
  42. Glucosamine + msm [Concomitant]
     Indication: Product used for unknown indication
     Dosage: 1500MG/1500MG
     Route: 065
  43. VOLTAREN [Concomitant]
     Active Substance: DICLOFENAC SODIUM
     Indication: Product used for unknown indication
     Route: 065

REACTIONS (6)
  - Intervertebral disc protrusion [Recovered/Resolved]
  - Fatigue [Recovered/Resolved]
  - Post procedural complication [Recovered/Resolved]
  - Surgery [Unknown]
  - Sinus disorder [Recovered/Resolved]
  - Sinus disorder [Recovered/Resolved]

NARRATIVE: CASE EVENT DATE: 20240610
